FAERS Safety Report 26054667 (Version 2)
Quarter: 2025Q4

REPORT INFORMATION
  Report Type: Report from Study
  Country: CA (occurrence: CA)
  Receive Date: 20251117
  Receipt Date: 20251211
  Transmission Date: 20260117
  Serious: Yes (Hospitalization)
  Sender: LUNDBECK
  Company Number: CA-LUNDBECK-DKLU4021731

PATIENT
  Age: 52 Year
  Sex: Male

DRUGS (1)
  1. VYEPTI [Suspect]
     Active Substance: EPTINEZUMAB-JJMR
     Indication: Migraine
     Dosage: 100 MILLIGRAM
     Route: 041
     Dates: start: 20250609

REACTIONS (2)
  - Myocardial infarction [Recovering/Resolving]
  - Respiratory disorder [Recovering/Resolving]

NARRATIVE: CASE EVENT DATE: 20250912
